FAERS Safety Report 26190845 (Version 1)
Quarter: 2025Q4

REPORT INFORMATION
  Report Type: Spontaneous
  Country: US (occurrence: US)
  Receive Date: 20251223
  Receipt Date: 20251223
  Transmission Date: 20260118
  Serious: Yes (Other)
  Sender: IBSA INSTITUT BIOCHIMIQUE
  Company Number: US-IBSA PHARMA INC.-2025IBS000623

PATIENT

DRUGS (3)
  1. LIDOCAINE [Suspect]
     Active Substance: LIDOCAINE
     Indication: Arthralgia
     Dosage: 1 PATCH EVERY 12 HOURS
     Route: 061
     Dates: end: 202412
  2. LIDOCAINE [Suspect]
     Active Substance: LIDOCAINE
     Dosage: 1 PATCH EVERY 12 HOURS
     Route: 061
     Dates: start: 20251202
  3. LIDOCAINE [Suspect]
     Active Substance: LIDOCAINE
     Indication: Arthralgia
     Route: 061

REACTIONS (4)
  - Gastrointestinal carcinoma [Unknown]
  - Hepatic cancer [Unknown]
  - Drug effective for unapproved indication [Unknown]
  - Off label use [Unknown]

NARRATIVE: CASE EVENT DATE: 20230101
